FAERS Safety Report 10553571 (Version 1)
Quarter: 2014Q4

REPORT INFORMATION
  Report Type: Spontaneous
  Country: FR (occurrence: None)
  Receive Date: 20141029
  Receipt Date: 20141029
  Transmission Date: 20150529
  Serious: Yes (Other)
  Sender: FDA-Public Use
  Company Number: B1013293A

PATIENT
  Age: 64 Year
  Sex: Male

DRUGS (2)
  1. TIVICAY [Suspect]
     Active Substance: DOLUTEGRAVIR SODIUM
     Indication: HIV INFECTION
     Dosage: UKNOWN
     Dates: start: 20140313, end: 201403
  2. KIVEXA [Suspect]
     Active Substance: ABACAVIR SULFATE\LAMIVUDINE
     Indication: HIV INFECTION
     Dosage: UKNOWN
     Dates: start: 20140313, end: 201403

REACTIONS (3)
  - Asthmatic crisis [None]
  - Sleep disorder [None]
  - Dyspnoea [None]

NARRATIVE: CASE EVENT DATE: 20140314
